FAERS Safety Report 17103034 (Version 1)
Quarter: 2019Q4

REPORT INFORMATION
  Report Type: Spontaneous
  Country: US (occurrence: US)
  Receive Date: 20191203
  Receipt Date: 20191203
  Transmission Date: 20200122
  Serious: No
  Sender: FDA-Public Use
  Company Number: NVSC2019US053676

PATIENT
  Age: 73 Year
  Sex: Female

DRUGS (2)
  1. PREDNISONE. [Suspect]
     Active Substance: PREDNISONE
     Indication: CRYSTAL ARTHROPATHY
     Dosage: 30 MG, FOR 5-7 DAYS
     Route: 065
  2. PREDNISONE. [Suspect]
     Active Substance: PREDNISONE
     Dosage: 2.5 MG, QD
     Route: 065

REACTIONS (1)
  - Drug ineffective [Unknown]
